FAERS Safety Report 8609313-0 (Version None)
Quarter: 2012Q3

REPORT INFORMATION
  Report Type: 
  Country: None (occurrence: None)
  Receive Date: 20120821
  Receipt Date: 20120815
  Transmission Date: 20120928
  Serious: Yes (Hospitalization, Other)
  Sender: FDA-Public Use
  Company Number: PHEH2012US016222

PATIENT

DRUGS (1)
  1. CLOZARIL [Suspect]
     Dosage: UNK UKN, UNK

REACTIONS (1)
  - LUNG NEOPLASM MALIGNANT [None]
